FAERS Safety Report 13135805 (Version 2)
Quarter: 2017Q1

REPORT INFORMATION
  Report Type: Report from Study
  Country: US (occurrence: US)
  Receive Date: 20170120
  Receipt Date: 20170301
  Transmission Date: 20170428
  Serious: Yes (Hospitalization)
  Sender: FDA-Public Use
  Company Number: US-ACTELION-A-US2017-148757

PATIENT
  Age: 77 Year
  Sex: Female
  Weight: 61.22 kg

DRUGS (1)
  1. VENTAVIS [Suspect]
     Active Substance: ILOPROST
     Indication: PULMONARY ARTERIAL HYPERTENSION
     Dosage: 5 UNK, 6-9X/DAY
     Route: 055
     Dates: start: 20160602

REACTIONS (6)
  - Respiratory disorder [Unknown]
  - Balance disorder [Unknown]
  - Dyspnoea [Unknown]
  - Productive cough [Unknown]
  - Pulmonary arterial hypertension [Unknown]
  - Cough [Unknown]
